FAERS Safety Report 7439577-0 (Version None)
Quarter: 2011Q2

REPORT INFORMATION
  Report Type: 
  Country: None (occurrence: None)
  Receive Date: 20110427
  Receipt Date: 20090930
  Transmission Date: 20111010
  Serious: Yes (Other)
  Sender: FDA-Public Use
  Company Number: US-BAYER-201041888NA

PATIENT
  Age: 54 Year
  Sex: Female
  Weight: 67.12 kg

DRUGS (14)
  1. LENTE INSULIN [Concomitant]
     Dosage: 25 U EVERY MORNING
  2. ANCEF [Concomitant]
     Dosage: 1 G, UNK
     Route: 042
     Dates: start: 20040213, end: 20040213
  3. AMINOPHYLLIN [Concomitant]
     Dosage: UNK
     Route: 042
     Dates: start: 20040213, end: 20040213
  4. VERSED [Concomitant]
     Dosage: UNK
     Route: 042
     Dates: start: 20040213, end: 20040213
  5. DOBUTREX [Concomitant]
     Dosage: UNK
     Route: 042
     Dates: start: 20040213, end: 20040213
  6. PROTAMINE SULFATE [Concomitant]
     Dosage: 300 MG, UNK
     Route: 042
     Dates: start: 20040213, end: 20040213
  7. TRASYLOL [Suspect]
     Indication: CORONARY ARTERY BYPASS
     Dosage: 1 ML, UNK, INITIAL TEST DOSE
     Route: 042
     Dates: start: 20040213, end: 20040213
  8. LEVOXYL [Concomitant]
     Dosage: 100 MG, QD
  9. BUMEX [Concomitant]
  10. TRASYLOL [Suspect]
     Dosage: 200 ML PUMP PRIME
     Route: 042
     Dates: start: 20040213, end: 20040213
  11. WHOLE BLOOD [Concomitant]
     Dosage: 2 U, UNK
     Route: 042
     Dates: start: 20040213, end: 20040213
  12. BENICAR [Concomitant]
     Route: 048
  13. LIPITOR [Concomitant]
  14. EPINEPHRINE [Concomitant]
     Dosage: 1 MG, UNK
     Route: 042
     Dates: start: 20040213, end: 20040213

REACTIONS (13)
  - FEAR [None]
  - PAIN [None]
  - FEAR OF DEATH [None]
  - NERVOUSNESS [None]
  - ANHEDONIA [None]
  - DEPRESSION [None]
  - INJURY [None]
  - RENAL INJURY [None]
  - EMOTIONAL DISTRESS [None]
  - ANXIETY [None]
  - RENAL FAILURE [None]
  - MULTI-ORGAN FAILURE [None]
  - UNEVALUABLE EVENT [None]
